FAERS Safety Report 5030989-1 (Version None)
Quarter: 2006Q2

REPORT INFORMATION
  Report Type: 
  Country: None (occurrence: None)
  Receive Date: 20060621
  Receipt Date: 20060303
  Transmission Date: 20061013
  Serious: Yes (Other)
  Sender: FDA-Public Use
  Company Number: 2006032183

PATIENT
  Age: 7 Year
  Sex: Male

DRUGS (9)
  1. FLOVENT [Suspect]
     Indication: MULTIPLE ALLERGIES
     Dosage: 88MCG TWICE PER DAY
     Route: 055
     Dates: start: 20050513
  2. ALBUTEROL [Suspect]
     Indication: MULTIPLE ALLERGIES
     Route: 065
     Dates: start: 20050513
  3. ZYRTEC [Suspect]
     Indication: MULTIPLE ALLERGIES
     Route: 048
     Dates: start: 20050424
  4. RHINOCORT [Concomitant]
     Route: 045
     Dates: start: 20050513
  5. ZITHROMAX [Concomitant]
     Dates: start: 20051201
  6. SINGULAIR [Concomitant]
     Route: 048
     Dates: start: 20050513
  7. AMOXICILLIN + CLAVULANATE POTASSIUM [Concomitant]
  8. OLOPATADINE HYDROCHLORIDE [Concomitant]
  9. ALBUTEROL [Concomitant]
     Indication: DRUG USE FOR UNKNOWN INDICATION
     Route: 055
     Dates: start: 20050513

REACTIONS (14)
  - ABNORMAL BEHAVIOUR [None]
  - AGGRESSION [None]
  - ANXIETY [None]
  - DISTURBANCE IN ATTENTION [None]
  - DRUG INTERACTION [None]
  - EDUCATIONAL PROBLEM [None]
  - ENERGY INCREASED [None]
  - FRUSTRATION [None]
  - IRRITABILITY [None]
  - MALAISE [None]
  - PERSONALITY CHANGE [None]
  - RESTLESSNESS [None]
  - RHINORRHOEA [None]
  - STRESS [None]
